FAERS Safety Report 6985890-0 (Version None)
Quarter: 2010Q3

REPORT INFORMATION
  Report Type: 
  Country: None (occurrence: None)
  Receive Date: 20100915
  Receipt Date: 20100909
  Transmission Date: 20110219
  Serious: Yes (Hospitalization)
  Sender: FDA-Public Use
  Company Number: GB-ABBOTT-10P-167-0669460-00

PATIENT
  Sex: Female

DRUGS (1)
  1. HUMIRA [Suspect]
     Indication: PRODUCT USED FOR UNKNOWN INDICATION
     Dates: start: 20081001, end: 20100826

REACTIONS (2)
  - ANTINEUTROPHIL CYTOPLASMIC ANTIBODY POSITIVE [None]
  - VASCULITIS [None]
